FAERS Safety Report 9773838 (Version 2)
Quarter: 2014Q3

REPORT INFORMATION
  Report Type: Spontaneous
  Country: US (occurrence: US)
  Receive Date: 20131220
  Receipt Date: 20140707
  Transmission Date: 20150326
  Serious: Yes (Hospitalization, Other)
  Sender: FDA-Public Use
  Company Number: US-009507513-1312USA007171

PATIENT
  Sex: Female

DRUGS (1)
  1. NUVARING [Suspect]
     Active Substance: ETHINYL ESTRADIOL\ETONOGESTREL
     Indication: CONTRACEPTION
     Dosage: UNK
     Route: 067
     Dates: start: 201210, end: 20130202

REACTIONS (9)
  - Pulmonary embolism [Unknown]
  - Anticoagulation drug level below therapeutic [Unknown]
  - Pleural effusion [Unknown]
  - Pneumonia [Unknown]
  - Embolism venous [Unknown]
  - Menorrhagia [Unknown]
  - Menstrual disorder [Unknown]
  - Paranasal sinus discomfort [Unknown]
  - Antiphospholipid antibodies positive [Unknown]

NARRATIVE: CASE EVENT DATE: 2013
